FAERS Safety Report 6974227-9 (Version None)
Quarter: 2010Q3

REPORT INFORMATION
  Report Type: 
  Country: None (occurrence: None)
  Receive Date: 20100909
  Receipt Date: 20080417
  Transmission Date: 20110219
  Serious: No
  Sender: FDA-Public Use
  Company Number: US-WYE-H03663408

PATIENT
  Age: 61 Year
  Sex: Male

DRUGS (2)
  1. PROTONIX [Suspect]
     Indication: DYSPEPSIA
     Route: 048
     Dates: start: 20050101
  2. ASCORBIC ACID [Concomitant]

REACTIONS (1)
  - ENAMEL ANOMALY [None]
